FAERS Safety Report 4925526-3 (Version None)
Quarter: 2006Q1

REPORT INFORMATION
  Report Type: 
  Country: None (occurrence: None)
  Receive Date: 20060228
  Receipt Date: 20050311
  Transmission Date: 20060701
  Serious: No
  Sender: FDA-Public Use
  Company Number: US-GLAXOSMITHKLINE-A0549410A

PATIENT
  Age: 39 Year
  Sex: Female

DRUGS (4)
  1. LAMICTAL [Suspect]
     Indication: BIPOLAR DISORDER
     Dosage: 100MG PER DAY
     Route: 048
     Dates: start: 20050101
  2. PROZAC [Concomitant]
  3. TOPAMAX [Concomitant]
  4. KLONOPIN [Concomitant]

REACTIONS (8)
  - HEADACHE [None]
  - HYPERSOMNIA [None]
  - LETHARGY [None]
  - MYALGIA [None]
  - PRURITUS [None]
  - RASH [None]
  - RASH ERYTHEMATOUS [None]
  - URINE ABNORMALITY [None]
